FAERS Safety Report 15324123 (Version 3)
Quarter: 2018Q4

REPORT INFORMATION
  Report Type: Spontaneous
  Country: US (occurrence: US)
  Receive Date: 20180828
  Receipt Date: 20181012
  Transmission Date: 20190204
  Serious: No
  Sender: FDA-Public Use
  Company Number: US-LEO PHARMA-310667

PATIENT
  Age: 56 Year
  Sex: Female

DRUGS (2)
  1. PICATO [Suspect]
     Active Substance: INGENOL MEBUTATE
     Indication: ACTINIC KERATOSIS
     Dosage: THREE WEEKS AGO FOR 2 DAYS
     Route: 061
     Dates: start: 201808
  2. PICATO [Suspect]
     Active Substance: INGENOL MEBUTATE
     Dosage: USE IN PAST ON ARMS, RIGHT LEG, HANDS, LOWER RIGHT BACK, AND SHOULDERS

REACTIONS (8)
  - Erythema [Recovering/Resolving]
  - Application site pruritus [Recovering/Resolving]
  - Skin lesion [Recovering/Resolving]
  - Application site discharge [Recovering/Resolving]
  - Rash [Recovering/Resolving]
  - Eczema [Recovering/Resolving]
  - Pruritus [Recovering/Resolving]
  - Product use in unapproved indication [Unknown]

NARRATIVE: CASE EVENT DATE: 20180806
